FAERS Safety Report 8815101 (Version 4)
Quarter: 2013Q1

REPORT INFORMATION
  Report Type: Report from Study
  Country: DE (occurrence: DE)
  Receive Date: 20120928
  Receipt Date: 20130103
  Transmission Date: 20140127
  Serious: Yes (Hospitalization)
  Sender: FDA-Public Use
  Company Number: DE-JNJFOC-20120911108

PATIENT
  Age: 12 Year
  Sex: Male
  Weight: 29.6 kg

DRUGS (4)
  1. REMICADE [Suspect]
     Indication: CROHN^S DISEASE
     Route: 042
     Dates: start: 20100810, end: 20110308
  2. VIVAGLOBIN [Concomitant]
     Route: 058
     Dates: start: 20110725
  3. HUMIRA [Concomitant]
     Indication: CROHN^S DISEASE
     Dates: start: 20110408
  4. AZATHIOPRINE [Concomitant]

REACTIONS (1)
  - Crohn^s disease [Recovered/Resolved]
